FAERS Safety Report 6150820-0 (Version None)
Quarter: 2009Q2

REPORT INFORMATION
  Report Type: 
  Country: None (occurrence: None)
  Receive Date: 20090408
  Receipt Date: 20090320
  Transmission Date: 20091009
  Serious: Yes (Death, Hospitalization)
  Sender: FDA-Public Use
  Company Number: 2009AL001684

PATIENT
  Age: 72 Year
  Sex: Female

DRUGS (11)
  1. DIGOXIN [Suspect]
     Dosage: 0.125MG, DAILY, PO
     Route: 048
  2. VIOXX [Concomitant]
  3. PREDNISONE [Concomitant]
  4. DILTIAZEM [Concomitant]
  5. MEHOTREXATE [Concomitant]
  6. ATENOLOL [Concomitant]
  7. CALCIUM [Concomitant]
  8. COUMADIN [Concomitant]
  9. VITAMIN D [Concomitant]
  10. FOLIC ACID [Concomitant]
  11. FAMOTIDINE [Concomitant]

REACTIONS (11)
  - ATRIAL FIBRILLATION [None]
  - CEREBROVASCULAR ACCIDENT [None]
  - DYSARTHRIA [None]
  - ECONOMIC PROBLEM [None]
  - EMOTIONAL DISORDER [None]
  - FACIAL PALSY [None]
  - HEADACHE [None]
  - HEMIPARESIS [None]
  - HYDROCEPHALUS [None]
  - PAIN [None]
  - RHEUMATOID ARTHRITIS [None]
